FAERS Safety Report 5327550-8 (Version None)
Quarter: 2007Q2

REPORT INFORMATION
  Report Type: 
  Country: None (occurrence: None)
  Receive Date: 20070517
  Receipt Date: 20070201
  Transmission Date: 20071010
  Serious: Yes (Hospitalization)
  Sender: FDA-Public Use
  Company Number: US-JNJFOC-20070104144

PATIENT
  Age: 42 Year
  Sex: Female

DRUGS (2)
  1. TRAMADOL HCL [Suspect]
     Indication: OVERDOSE
     Route: 048
  2. APAP TAB [Suspect]
     Indication: OVERDOSE
     Route: 048

REACTIONS (2)
  - ANALGESIC DRUG LEVEL INCREASED [None]
  - MULTIPLE DRUG OVERDOSE [None]
